FAERS Safety Report 6195437-7 (Version None)
Quarter: 2009Q2

REPORT INFORMATION
  Report Type: 
  Country: None (occurrence: None)
  Receive Date: 20090515
  Receipt Date: 20090511
  Transmission Date: 20091009
  Serious: Yes (Hospitalization)
  Sender: FDA-Public Use
  Company Number: POMP-1000221

PATIENT
  Age: 6 Week
  Sex: Female
  Weight: 3.6 kg

DRUGS (4)
  1. MYOZYME [Suspect]
     Indication: GLYCOGEN STORAGE DISEASE TYPE II
     Dosage: 20 MG/KG, Q2W, INTRAVENOUS
     Route: 042
     Dates: start: 20080519
  2. METHOTREXATE [Concomitant]
  3. IMMUNE GLOBULIN (IMMUNOGLOBULIN) [Concomitant]
  4. RITUXIMAB [Concomitant]

REACTIONS (7)
  - BLOOD IMMUNOGLOBULIN G INCREASED [None]
  - DIARRHOEA [None]
  - OXYGEN CONSUMPTION INCREASED [None]
  - POST PROCEDURAL COMPLICATION [None]
  - SLEEP APNOEA SYNDROME [None]
  - STRIDOR [None]
  - VOMITING [None]
